FAERS Safety Report 24612686 (Version 1)
Quarter: 2024Q4

REPORT INFORMATION
  Report Type: Spontaneous
  Country: US (occurrence: None)
  Receive Date: 20241112
  Receipt Date: 20241112
  Transmission Date: 20250115
  Serious: No
  Sender: Public
  Company Number: None

PATIENT
  Age: 84 Year
  Sex: Female
  Weight: 77.11 kg

DRUGS (1)
  1. ACTEMRA [Suspect]
     Active Substance: TOCILIZUMAB
     Indication: Periorbital inflammation
     Dosage: OTHER FREQUENCY : ONCEAWKASDIRECTED;?
     Route: 058
     Dates: start: 202406

REACTIONS (3)
  - Peripheral swelling [None]
  - Infection [None]
  - Intentional dose omission [None]
